FAERS Safety Report 16969308 (Version 1)
Quarter: 2019Q4

REPORT INFORMATION
  Report Type: Report from Study
  Country: NL (occurrence: NL)
  Receive Date: 20191029
  Receipt Date: 20191029
  Transmission Date: 20200122
  Serious: Yes (Other)
  Sender: FDA-Public Use
  Company Number: NL-TEVA-2019-NL-1128313

PATIENT
  Age: 21 Year
  Sex: Male

DRUGS (4)
  1. INFLIXIMAB - REMICADE [Concomitant]
     Dosage: 400MG, 1X/8W
     Dates: start: 20140619, end: 20160215
  2. VITAMINE D [Concomitant]
     Active Substance: CHOLECALCIFEROL
     Dosage: 1000MG/IE, 1X/D
     Dates: start: 20110510
  3. AZATHIOPRINE. [Concomitant]
     Active Substance: AZATHIOPRINE
     Dosage: 50MG, 1X/D
     Dates: start: 20140911, end: 20151205
  4. ALLOPURINOL. [Suspect]
     Active Substance: ALLOPURINOL
     Indication: COLITIS ULCERATIVE
     Dosage: 100MG, 1X/D
     Dates: start: 20140911, end: 20151205

REACTIONS (1)
  - Hepatitis [Recovered/Resolved]

NARRATIVE: CASE EVENT DATE: 20150504
